FAERS Safety Report 17824642 (Version 1)
Quarter: 2020Q2

REPORT INFORMATION
  Report Type: Spontaneous
  Country: JP (occurrence: JP)
  Receive Date: 20200526
  Receipt Date: 20200526
  Transmission Date: 20200714
  Serious: Yes (Hospitalization, Other)
  Sender: FDA-Public Use
  Company Number: JP-009507513-2005JPN007715

PATIENT
  Age: 31 Year
  Sex: Female

DRUGS (8)
  1. CABASER [Concomitant]
     Active Substance: CABERGOLINE
     Indication: PREMEDICATION
     Dosage: 3X3
     Dates: start: 20170226
  2. OVIDREL [Suspect]
     Active Substance: CHORIOGONADOTROPIN ALFA
     Indication: ASSISTED FERTILISATION
     Dosage: SINGLE DOSE
     Route: 058
     Dates: start: 20170224
  3. GANIREST [Suspect]
     Active Substance: GANIRELIX ACETATE
     Indication: PREVENTION OF PREMATURE OVULATION
     Dosage: 0.25 MILLIGRAM, QD
     Route: 058
  4. GANIREST [Suspect]
     Active Substance: GANIRELIX ACETATE
     Dosage: 0.5 MILLIGRAM, QD
     Dates: start: 20170227, end: 20170228
  5. GANIREST [Suspect]
     Active Substance: GANIRELIX ACETATE
     Dosage: 0.25 MILLIGRAM, QD
     Route: 058
     Dates: start: 20170226
  6. MENOTROPINS [Suspect]
     Active Substance: MENOTROPINS
     Indication: CONTROLLED OVARIAN STIMULATION
     Dosage: FORM STRENGTH: 75 (FERRING) (UNITS UNSPECIFIED)
     Dates: start: 20170221
  7. MENOTROPINS [Suspect]
     Active Substance: MENOTROPINS
     Dosage: FORM STRENGTH: 150 (FERRING) (UNITS UNSPECIFIED) STARTED ON 22 FEB 2017
     Route: 030
     Dates: start: 20170222, end: 20170223
  8. GONAL-F [Suspect]
     Active Substance: FOLLITROPIN
     Indication: CONTROLLED OVARIAN STIMULATION
     Dosage: 150 INTERNATIONAL UNIT, QD
     Route: 058

REACTIONS (2)
  - Ovarian hyperstimulation syndrome [Recovered/Resolved]
  - Off label use [Unknown]

NARRATIVE: CASE EVENT DATE: 20170224
